FAERS Safety Report 25379869 (Version 1)
Quarter: 2025Q2

REPORT INFORMATION
  Report Type: Spontaneous
  Country: US (occurrence: US)
  Receive Date: 20250530
  Receipt Date: 20250530
  Transmission Date: 20250716
  Serious: No
  Sender: CIPLA
  Company Number: US-CIPLA LTD.-2025US00354

PATIENT

DRUGS (4)
  1. ALBUTEROL [Suspect]
     Active Substance: ALBUTEROL
     Indication: Product used for unknown indication
     Dates: start: 202412
  2. ALBUTEROL [Suspect]
     Active Substance: ALBUTEROL
     Dates: start: 202412
  3. ALBUTEROL [Suspect]
     Active Substance: ALBUTEROL
  4. PROCLIN K [Concomitant]
     Indication: Product used for unknown indication
     Route: 065

REACTIONS (3)
  - Drug dose omission by device [Unknown]
  - Device delivery system issue [Unknown]
  - Product substitution issue [Unknown]

NARRATIVE: CASE EVENT DATE: 20241201
